FAERS Safety Report 14503167 (Version 2)
Quarter: 2018Q1

REPORT INFORMATION
  Report Type: Spontaneous
  Country: US (occurrence: US)
  Receive Date: 20180208
  Receipt Date: 20180212
  Transmission Date: 20180509
  Serious: No
  Sender: FDA-Public Use
  Company Number: US-PFIZER INC-2018052180

PATIENT
  Age: 63 Year
  Sex: Male

DRUGS (2)
  1. SILDENAFIL CITRATE. [Suspect]
     Active Substance: SILDENAFIL CITRATE
     Indication: SEXUAL DYSFUNCTION
     Dosage: 20 MG, UNK (TAKE 1 TO 5 TABLETS, DO NOT EXCEED 5 TABLETS IN 24 HOURS)
     Route: 048
  2. SILDENAFIL CITRATE. [Suspect]
     Active Substance: SILDENAFIL CITRATE
     Dosage: UNK UNK, AS NEEDED
     Route: 048

REACTIONS (7)
  - Nervousness [Unknown]
  - Drug dispensing error [Unknown]
  - Flushing [Unknown]
  - Wrong drug administered [Unknown]
  - Drug ineffective for unapproved indication [Unknown]
  - Hyperhidrosis [Unknown]
  - Malaise [Unknown]
